FAERS Safety Report 6371441-0 (Version None)
Quarter: 2009Q3

REPORT INFORMATION
  Report Type: 
  Country: None (occurrence: None)
  Receive Date: 20090923
  Receipt Date: 20070731
  Transmission Date: 20100115
  Serious: Yes (Hospitalization)
  Sender: FDA-Public Use
  Company Number: US-ASTRAZENECA-2007UW12084

PATIENT
  Age: 16723 Day
  Sex: Female
  Weight: 81.6 kg

DRUGS (23)
  1. SEROQUEL [Suspect]
     Indication: DEPRESSION
     Dosage: 25-300MG
     Route: 048
     Dates: start: 20020116
  2. PREVACID [Concomitant]
  3. PAXIL [Concomitant]
  4. EFFEXOR [Concomitant]
  5. PREMARIN [Concomitant]
  6. CLONAZEPAM [Concomitant]
  7. SYNTHROID [Concomitant]
  8. AMITRIPTYLINE [Concomitant]
  9. OXYBUTYNIN CHLORIDE [Concomitant]
  10. QUINAPRIL [Concomitant]
  11. HYDROCODONE [Concomitant]
  12. GLUCOPHAGE [Concomitant]
  13. ZOLOFT [Concomitant]
  14. BEXTRA [Concomitant]
  15. AMBIEN [Concomitant]
  16. CARBIDOPA [Concomitant]
  17. FUROSEMIDE [Concomitant]
  18. CYCLOBENZAPRINE [Concomitant]
  19. SIMVASTATIN [Concomitant]
  20. ACTOS [Concomitant]
  21. AMARYL [Concomitant]
  22. LISINOPRIL [Concomitant]
  23. LANTUS [Concomitant]

REACTIONS (2)
  - DIABETES MELLITUS [None]
  - DIABETES MELLITUS INADEQUATE CONTROL [None]
